FAERS Safety Report 11922566 (Version 1)
Quarter: 2016Q1

REPORT INFORMATION
  Report Type: Spontaneous
  Country: US (occurrence: US)
  Receive Date: 20160115
  Receipt Date: 20160115
  Transmission Date: 20160526
  Serious: No
  Sender: FDA-Public Use
  Company Number: US-ALK ABELLO INC-1046553

PATIENT
  Age: 12 Year
  Sex: Female

DRUGS (9)
  1. CASHEW. [Concomitant]
     Active Substance: CASHEW
     Route: 059
     Dates: start: 20151103, end: 20151103
  2. WHOLE EGG [Concomitant]
     Active Substance: EGG
     Route: 059
     Dates: start: 20151103, end: 20151103
  3. WALNUT [Concomitant]
     Route: 059
     Dates: start: 20151215, end: 20151215
  4. PECAN. [Suspect]
     Active Substance: PECAN
     Route: 059
     Dates: start: 20151103, end: 20151103
  5. WALNUT [Concomitant]
     Route: 059
     Dates: start: 20151103, end: 20151103
  6. HISTAMINE POSITIVE [Concomitant]
     Active Substance: HISTAMINE PHOSPHATE
     Route: 059
     Dates: start: 20151103, end: 20151103
  7. ALMOND. [Concomitant]
     Active Substance: ALMOND
     Route: 059
     Dates: start: 20151103, end: 20151103
  8. PEANUT. [Concomitant]
     Active Substance: PEANUT
     Route: 059
     Dates: start: 20151103, end: 20151103
  9. HISTAMINE POSITIVE [Concomitant]
     Active Substance: HISTAMINE PHOSPHATE
     Route: 059
     Dates: start: 20151215, end: 20151215

REACTIONS (1)
  - Drug ineffective [Recovered/Resolved]

NARRATIVE: CASE EVENT DATE: 20151103
